FAERS Safety Report 5187673-3 (Version None)
Quarter: 2006Q4

REPORT INFORMATION
  Report Type: 
  Country: None (occurrence: None)
  Receive Date: 20061214
  Receipt Date: 20061130
  Transmission Date: 20070319
  Serious: Yes (Hospitalization)
  Sender: FDA-Public Use
  Company Number: 8020401

PATIENT

DRUGS (1)
  1. KEPPRA [Suspect]
     Dosage: TRP
     Route: 064
     Dates: end: 20061016

REACTIONS (4)
  - DRUG EXPOSURE DURING PREGNANCY [None]
  - FOETAL HEART RATE DISORDER [None]
  - GROWTH RETARDATION [None]
  - RETROPLACENTAL HAEMATOMA [None]
